FAERS Safety Report 7470426-0 (Version None)
Quarter: 2011Q2

REPORT INFORMATION
  Report Type: 
  Country: None (occurrence: None)
  Receive Date: 20110510
  Receipt Date: 20110413
  Transmission Date: 20111010
  Serious: Yes (Hospitalization, Other)
  Sender: FDA-Public Use
  Company Number: US-BAYER-2011-011238

PATIENT
  Age: 38 Year
  Sex: Female
  Weight: 79.819 kg

DRUGS (2)
  1. YASMIN [Suspect]
     Indication: VAGINAL HAEMORRHAGE
     Dosage: UNK
     Dates: start: 20020701, end: 20091201
  2. CLINDAMYCIN [Concomitant]

REACTIONS (1)
  - PULMONARY EMBOLISM [None]
